FAERS Safety Report 12899753 (Version 9)
Quarter: 2020Q4

REPORT INFORMATION
  Report Type: Spontaneous
  Country: US (occurrence: US)
  Receive Date: 20161101
  Receipt Date: 20201218
  Transmission Date: 20210113
  Serious: Yes (Other)
  Sender: FDA-Public Use
  Company Number: US-PFIZER INC-2016501009

PATIENT
  Age: 69 Year
  Sex: Male

DRUGS (2)
  1. CADUET [Suspect]
     Active Substance: AMLODIPINE BESYLATE\ATORVASTATIN CALCIUM
     Dosage: UNK
  2. LIPITOR [Suspect]
     Active Substance: ATORVASTATIN CALCIUM
     Dosage: UNK

REACTIONS (11)
  - Intestinal polyp [Unknown]
  - Weight loss poor [Unknown]
  - Weight increased [Unknown]
  - Arthritis [Unknown]
  - Eye infection [Unknown]
  - Eye disorder [Unknown]
  - Cystic eyeball, congenital [Recovered/Resolved]
  - Lacrimation increased [Unknown]
  - Glaucoma [Unknown]
  - Cataract [Unknown]
  - Visual impairment [Unknown]
